FAERS Safety Report 10650320 (Version 1)
Quarter: 2014Q4

REPORT INFORMATION
  Report Type: Other
  Country: DE (occurrence: DE)
  Receive Date: 20141213
  Receipt Date: 20141213
  Transmission Date: 20150529
  Serious: Yes (Other)
  Sender: FDA-Public Use
  Company Number: DE-MYLANLABS-2014M1012429

PATIENT

DRUGS (4)
  1. CANDESARTAN/HYDROCHLOROTHIAZID 32/12,5 [Concomitant]
     Indication: HYPERTENSION
     Dosage: 0.5 DF, QD (DAILY DOSE: 0.5 DF DOSAGE FORM EVERY DAYS)
     Dates: start: 20141028, end: 20141112
  2. METOPROLOL [Concomitant]
     Active Substance: METOPROLOL
     Indication: HYPERTENSION
     Dosage: 0.5 DF, QD (DAILY DOSE: 0.5 DF DOSAGE FORM EVERY DAYS)
     Dates: start: 20131001
  3. BLOPRESS FORTE 32/12,5 [Suspect]
     Active Substance: CANDESARTAN CILEXETIL\HYDROCHLOROTHIAZIDE
     Indication: HYPERTENSION
     Dosage: 0.5 DF, UNK
     Dates: start: 20131002, end: 20141027
  4. ENALAPRIL [Suspect]
     Active Substance: ENALAPRIL
     Indication: HYPERTENSION
     Dosage: 10 MG, QD (DAILY DOSE: 10 MG MILLGRAM(S) EVERY DAYS)
     Dates: start: 20131001

REACTIONS (5)
  - Arthralgia [Unknown]
  - Anaemia [Unknown]
  - Tendon disorder [Unknown]
  - Myalgia [Unknown]
  - Thrombocytopenia [Unknown]
